FAERS Safety Report 13550652 (Version 1)
Quarter: 2017Q2

REPORT INFORMATION
  Report Type: Spontaneous
  Country: US (occurrence: US)
  Receive Date: 20170516
  Receipt Date: 20170516
  Transmission Date: 20170830
  Serious: Yes (Other)
  Sender: FDA-Public Use
  Company Number: US-SMITH AND NEPHEW, INC-2017SMT00210

PATIENT
  Age: 74 Year
  Sex: Male
  Weight: 172.34 kg

DRUGS (26)
  1. BACLOFEN. [Concomitant]
     Active Substance: BACLOFEN
     Dosage: 20 MG, UP TO 3X/DAY
  2. ASPIRIN. [Concomitant]
     Active Substance: ASPIRIN
     Dosage: 81 UNK, UNK
  3. FOLIC ACID. [Concomitant]
     Active Substance: FOLIC ACID
     Dosage: 0.4 MG, 1X/DAY
  4. TORSEMIDE. [Concomitant]
     Active Substance: TORSEMIDE
     Dosage: 20 MG, UNK 2X/DAY ON EVEN DAYS, 4X/DAY ON ODD DAYS
  5. NIACIN. [Concomitant]
     Active Substance: NIACIN
  6. HUMULIN R [Concomitant]
     Active Substance: INSULIN HUMAN
     Dosage: 500 U, 3X/DAY
  7. UNSPECIFIED MUCOUS RELIEF PILL [Concomitant]
  8. FISH OIL [Concomitant]
     Active Substance: FISH OIL
     Dosage: 1000 MG, 2X/DAY
  9. FLONASE [Concomitant]
     Active Substance: FLUTICASONE PROPIONATE
     Dosage: 50 ?G, 2X/DAY
  10. LEVOTHYROXINE. [Concomitant]
     Active Substance: LEVOTHYROXINE
     Dosage: 137 ?G, UNK
  11. REGRANEX [Suspect]
     Active Substance: BECAPLERMIN
     Indication: DIABETIC ULCER
     Dosage: UNK
     Dates: start: 201703, end: 20170320
  12. LUTEIN [Concomitant]
     Active Substance: LUTEIN
     Dosage: 20 MG, 1X/DAY
  13. VITAMIN B6 [Concomitant]
     Active Substance: PYRIDOXINE HYDROCHLORIDE
     Dosage: 100 MG, 1X/DAY
  14. REGRANEX [Suspect]
     Active Substance: BECAPLERMIN
     Dosage: UNK, 1X/DAY ON FOR 24 HOURS
     Route: 061
     Dates: start: 201703
  15. LOSARTAN. [Concomitant]
     Active Substance: LOSARTAN
     Dosage: 25 MG, UNK
  16. NEURONTIN [Concomitant]
     Active Substance: GABAPENTIN
     Dosage: 300 MG, UNK 4-5 TIMES DAILY
  17. NOVOLIN N [Concomitant]
     Active Substance: INSULIN HUMAN
     Dosage: UNK, 1X/DAY AT BEDTIME
  18. LIVALO [Concomitant]
     Active Substance: PITAVASTATIN CALCIUM
     Dosage: 2 UNK, UNK
  19. TURMERIC [Concomitant]
     Active Substance: HERBALS\TURMERIC
  20. IRON [Concomitant]
     Active Substance: IRON
     Dosage: MONDAY THRU THURSDAY
  21. LEVOTHYROXINE. [Concomitant]
     Active Substance: LEVOTHYROXINE
     Dosage: 112 ?G, UNK
  22. GLUCOSAMINE-CHONDROITIN [Concomitant]
     Active Substance: CHONDROITIN SULFATE (BOVINE)\GLUCOSAMINE SULFATE
     Dosage: UNK, 2X/DAY
  23. VITAMIN B12 [Concomitant]
     Active Substance: CYANOCOBALAMIN
     Dosage: 1000 ?G, 1X/DAY
  24. COMBIVENT [Concomitant]
     Active Substance: ALBUTEROL SULFATE\IPRATROPIUM BROMIDE
  25. VITAMIN E [Concomitant]
     Active Substance: .ALPHA.-TOCOPHEROL
     Dosage: UNK, 1X/DAY
  26. IPRATROPIUM [Concomitant]
     Active Substance: IPRATROPIUM
     Dosage: UNK, 4X/DAY

REACTIONS (6)
  - Wound haemorrhage [Recovered/Resolved]
  - Wound complication [Recovered/Resolved]
  - Peripheral vascular disorder [Unknown]
  - Inappropriate schedule of drug administration [Not Recovered/Not Resolved]
  - Wound decomposition [Not Recovered/Not Resolved]
  - Application site discolouration [Unknown]

NARRATIVE: CASE EVENT DATE: 201703
